FAERS Safety Report 4608940-5 (Version None)
Quarter: 2005Q1

REPORT INFORMATION
  Report Type: 
  Country: None (occurrence: None)
  Receive Date: 20050311
  Receipt Date: 20050303
  Transmission Date: 20050727
  Serious: Yes (Death)
  Sender: FDA-Public Use
  Company Number: GBWYE379328JAN05

PATIENT
  Age: 73 Year
  Sex: Female

DRUGS (6)
  1. LODINE [Suspect]
     Indication: OSTEOARTHRITIS
     Dosage: 600 MG
     Route: 048
     Dates: start: 20050104
  2. CO-DYDRAMOL (DIHYDROCODEINE BITARTRATE/PARACETAMOL) [Concomitant]
  3. DICLOFENAC SODIUM [Concomitant]
  4. SEROPLEX (ESCITALOPRAM) [Concomitant]
  5. GLUCOSAMINE SWULFATE (GLUCOSAMINE SULFATE) [Concomitant]
  6. ENALAPRIL MALEATE [Concomitant]

REACTIONS (2)
  - GASTRIC ULCER PERFORATION [None]
  - PERITONITIS [None]
